FAERS Safety Report 9266220 (Version 2)
Quarter: 2013Q2

REPORT INFORMATION
  Report Type: Spontaneous
  Country: US (occurrence: US)
  Receive Date: 20130502
  Receipt Date: 20130628
  Transmission Date: 20140414
  Serious: No
  Sender: FDA-Public Use
  Company Number: US-009507513-1305USA000041

PATIENT
  Age: 43 Year
  Sex: Male
  Weight: 87.98 kg

DRUGS (2)
  1. VICTRELIS [Suspect]
     Indication: HEPATITIS C
     Dosage: 800 MG, TID
     Route: 048
     Dates: start: 20121130
  2. MOTRIN [Suspect]

REACTIONS (6)
  - Sexual dysfunction [Unknown]
  - Anaemia [Unknown]
  - Depression [Unknown]
  - Anaemia [Unknown]
  - Fatigue [Unknown]
  - Influenza like illness [Unknown]
